FAERS Safety Report 6678079-6 (Version None)
Quarter: 2010Q2

REPORT INFORMATION
  Report Type: 
  Country: None (occurrence: None)
  Receive Date: 20100412
  Receipt Date: 20100402
  Transmission Date: 20101027
  Serious: Yes (Hospitalization, Disabling)
  Sender: FDA-Public Use
  Company Number: PL-ABBOTT-10P-129-0634505-00

PATIENT
  Sex: Male
  Weight: 60 kg

DRUGS (4)
  1. LUCRIN [Suspect]
     Indication: PROSTATE CANCER
     Route: 030
     Dates: start: 20090928, end: 20100324
  2. ACARD [Concomitant]
     Indication: DRUG USE FOR UNKNOWN INDICATION
     Route: 048
     Dates: start: 20100308
  3. BISOCARD [Concomitant]
     Indication: DRUG USE FOR UNKNOWN INDICATION
     Route: 048
     Dates: start: 20100308
  4. DIURESIN SR [Concomitant]
     Indication: DRUG USE FOR UNKNOWN INDICATION
     Route: 048
     Dates: start: 20100308

REACTIONS (4)
  - BLINDNESS UNILATERAL [None]
  - OPTIC ISCHAEMIC NEUROPATHY [None]
  - URINARY RETENTION [None]
  - VASODILATATION [None]
